FAERS Safety Report 19641254 (Version 5)
Quarter: 2022Q1

REPORT INFORMATION
  Report Type: Report from Study
  Country: US (occurrence: US)
  Receive Date: 20210729
  Receipt Date: 20220302
  Transmission Date: 20220423
  Serious: Yes (Hospitalization)
  Sender: FDA-Public Use
  Company Number: US-JNJFOC-20210748079

PATIENT
  Sex: Female

DRUGS (2)
  1. STELARA [Suspect]
     Active Substance: USTEKINUMAB
     Indication: Crohn^s disease
     Route: 058
     Dates: start: 20201013
  2. STELARA [Suspect]
     Active Substance: USTEKINUMAB

REACTIONS (9)
  - Chronic cutaneous lupus erythematosus [Unknown]
  - Urinary tract infection [Unknown]
  - Dehydration [Unknown]
  - Hyperhidrosis [Unknown]
  - Syringe issue [Unknown]
  - Infection [Not Recovered/Not Resolved]
  - Nausea [Unknown]
  - Thinking abnormal [Unknown]
  - Inappropriate schedule of product administration [Unknown]

NARRATIVE: CASE EVENT DATE: 20210301
